FAERS Safety Report 4616727-2 (Version None)
Quarter: 2005Q1

REPORT INFORMATION
  Report Type: 
  Country: None (occurrence: None)
  Receive Date: 20050321
  Receipt Date: 20031020
  Transmission Date: 20050727
  Serious: Yes (Disabling)
  Sender: FDA-Public Use
  Company Number: 6482

PATIENT
  Age: 64 Year
  Sex: Male

DRUGS (5)
  1. AMIODARONE [Suspect]
     Dosage: 50 MG PO
     Route: 048
     Dates: start: 20020501, end: 20030801
  2. IRON [Concomitant]
  3. ACETYLSALICYLIC ACID SRT [Concomitant]
  4. OMEPRAZOLE [Concomitant]
  5. BISOPROLOL FUMARATE [Concomitant]

REACTIONS (3)
  - FALL [None]
  - INTERVERTEBRAL DISC DEGENERATION [None]
  - NEUROPATHY PERIPHERAL [None]
